FAERS Safety Report 8359053 (Version 3)
Quarter: 2012Q4

REPORT INFORMATION
  Report Type: 
  Country: GB (occurrence: GB)
  Receive Date: 20120127
  Receipt Date: 20121019
  Transmission Date: 20130627
  Serious: Yes (Hospitalization, Other)
  Sender: FDA-Public Use
  Company Number: PHFR2011GB05348

PATIENT
  Age: 20 Year
  Sex: Male

DRUGS (1)
  1. CLOZARIL [Suspect]
     Indication: SCHIZOPHRENIA
     Dosage: 100 mg, daily
     Route: 048
     Dates: start: 20110905, end: 20110918

REACTIONS (14)
  - Colitis [Recovered/Resolved]
  - Gastroenteritis viral [Recovered/Resolved]
  - Pericarditis [Recovering/Resolving]
  - Chest pain [Recovered/Resolved]
  - Chest discomfort [Recovered/Resolved]
  - Diarrhoea [Recovered/Resolved]
  - Myocarditis [Recovered/Resolved]
  - Tachycardia [Recovered/Resolved]
  - Hypertension [Recovered/Resolved]
  - Heart rate irregular [Recovered/Resolved]
  - Blood prolactin increased [Unknown]
  - Blood urea decreased [Unknown]
  - Blood cholesterol increased [Unknown]
  - Differential white blood cell count abnormal [Unknown]
